FAERS Safety Report 21532802 (Version 2)
Quarter: 2022Q4

REPORT INFORMATION
  Report Type: Spontaneous
  Country: JP (occurrence: JP)
  Receive Date: 20221101
  Receipt Date: 20221221
  Transmission Date: 20230113
  Serious: Yes (Other)
  Sender: FDA-Public Use
  Company Number: JP-NOVARTISPH-NVSJ2022JP099942

PATIENT
  Sex: Female

DRUGS (3)
  1. ILARIS [Suspect]
     Active Substance: CANAKINUMAB
     Indication: Familial mediterranean fever
     Dosage: 150 MG
     Route: 058
     Dates: start: 202011
  2. ILARIS [Suspect]
     Active Substance: CANAKINUMAB
     Dosage: 300 MG
     Route: 058
     Dates: start: 202207
  3. COLCHICINE [Concomitant]
     Active Substance: COLCHICINE
     Indication: Peritonitis
     Dosage: UNK
     Route: 065
     Dates: start: 2015

REACTIONS (5)
  - Peritonitis [Recovering/Resolving]
  - Concomitant disease aggravated [Recovering/Resolving]
  - Familial mediterranean fever [Recovering/Resolving]
  - Disease recurrence [Recovering/Resolving]
  - Stress [Unknown]

NARRATIVE: CASE EVENT DATE: 20220101
